FAERS Safety Report 16927528 (Version 1)
Quarter: 2019Q4

REPORT INFORMATION
  Report Type: Report from Study
  Country: DE (occurrence: DE)
  Receive Date: 20191016
  Receipt Date: 20191016
  Transmission Date: 20200122
  Serious: Yes (Other)
  Sender: FDA-Public Use
  Company Number: DE-BIOGEN-2019BI00795610

PATIENT
  Age: 34 Year
  Sex: Female

DRUGS (7)
  1. FOLIC ACID. [Concomitant]
     Active Substance: FOLIC ACID
     Indication: PREGNANCY
     Route: 065
     Dates: start: 2019, end: 2019
  2. PLEGRIDY [Suspect]
     Active Substance: PEGINTERFERON BETA-1A
     Indication: MULTIPLE SCLEROSIS
     Route: 058
     Dates: start: 20180802, end: 20190801
  3. PLEGRIDY [Suspect]
     Active Substance: PEGINTERFERON BETA-1A
  4. PLEGRIDY [Suspect]
     Active Substance: PEGINTERFERON BETA-1A
  5. PLEGRIDY [Suspect]
     Active Substance: PEGINTERFERON BETA-1A
  6. PLEGRIDY [Suspect]
     Active Substance: PEGINTERFERON BETA-1A
  7. PLEGRIDY [Suspect]
     Active Substance: PEGINTERFERON BETA-1A

REACTIONS (2)
  - Maternal exposure during pregnancy [Recovered/Resolved]
  - Abortion spontaneous [Recovered/Resolved]

NARRATIVE: CASE EVENT DATE: 20190923
